FAERS Safety Report 14923512 (Version 1)
Quarter: 2018Q2

REPORT INFORMATION
  Report Type: Spontaneous
  Country: US (occurrence: US)
  Receive Date: 20180522
  Receipt Date: 20180522
  Transmission Date: 20180711
  Serious: No
  Sender: FDA-Public Use
  Company Number: US-TEVA-766530ACC

PATIENT
  Sex: Male

DRUGS (1)
  1. NYSTATIN 100K UNIT CREAM [Suspect]
     Active Substance: NYSTATIN
     Indication: RASH
     Dosage: 100 K
     Route: 061
     Dates: start: 20170429

REACTIONS (2)
  - Fatigue [Not Recovered/Not Resolved]
  - Vitamin D decreased [Not Recovered/Not Resolved]

NARRATIVE: CASE EVENT DATE: 20170429
